FAERS Safety Report 8538206-2 (Version None)
Quarter: 2012Q3

REPORT INFORMATION
  Report Type: 
  Country: None (occurrence: None)
  Receive Date: 20120726
  Receipt Date: 20120716
  Transmission Date: 20120928
  Serious: Yes (Other)
  Sender: FDA-Public Use
  Company Number: US-BIOGENIDEC-2012BI016290

PATIENT
  Age: 45 Year
  Sex: Female

DRUGS (5)
  1. ASPIRIN [Concomitant]
  2. SOLU-MEDROL [Concomitant]
     Route: 042
     Dates: start: 20100701, end: 20100701
  3. TYSABRI [Suspect]
     Indication: MULTIPLE SCLEROSIS
     Route: 042
     Dates: start: 20090608
  4. VESICARE [Concomitant]
  5. RITALIN [Concomitant]

REACTIONS (1)
  - DESMOID TUMOUR [None]
